FAERS Safety Report 12602692 (Version 1)
Quarter: 2016Q3

REPORT INFORMATION
  Report Type: Spontaneous
  Country: US (occurrence: None)
  Receive Date: 20160727
  Receipt Date: 20160727
  Transmission Date: 20161109
  Serious: Yes (Other)
  Sender: FDA-Public Use
  Company Number: None

PATIENT
  Age: 88 Year
  Sex: Male
  Weight: 76 kg

DRUGS (6)
  1. CIPROFLOXACIN, 500MG [Suspect]
     Active Substance: CIPROFLOXACIN
     Indication: URINARY TRACT INFECTION
     Route: 048
     Dates: start: 20160720, end: 20160722
  2. DILANTIN [Concomitant]
     Active Substance: PHENYTOIN
  3. PANTOPRAZOLE [Concomitant]
     Active Substance: PANTOPRAZOLE SODIUM
  4. BUDESONIDE FORMOTEROL FUMARATE [Concomitant]
  5. FAMOTIDINE, 20MG [Suspect]
     Active Substance: FAMOTIDINE
     Indication: DYSPEPSIA
     Route: 048
     Dates: start: 20160721, end: 20160722
  6. ASPIRIN. [Concomitant]
     Active Substance: ASPIRIN

REACTIONS (1)
  - Platelet count decreased [None]

NARRATIVE: CASE EVENT DATE: 20160721
